FAERS Safety Report 9954892 (Version 2)
Quarter: 2014Q1

REPORT INFORMATION
  Report Type: Report from Study
  Country: US (occurrence: US)
  Receive Date: 20140304
  Receipt Date: 20140304
  Transmission Date: 20141002
  Serious: No
  Sender: FDA-Public Use
  Company Number: US-ABBVIE-12P-163-0908361-00

PATIENT
  Age: 49 Year
  Sex: Female
  Weight: 70.37 kg

DRUGS (7)
  1. HUMIRA 40 MG/ 0.8 ML PRE-FILLED SYRINGE [Suspect]
     Indication: RHEUMATOID ARTHRITIS
     Dates: start: 200112, end: 201201
  2. HUMIRA 40 MG/ 0.8 ML PRE-FILLED SYRINGE [Suspect]
     Dosage: AS NEEDED, ABOUT EVERY 16 WEEKS
     Dates: start: 2012
  3. CEFTIN [Suspect]
     Indication: NASOPHARYNGITIS
     Dates: start: 20120106, end: 20120115
  4. CEFTIN [Suspect]
     Indication: SINUSITIS
  5. MULTIVITAMINS [Concomitant]
     Indication: PRODUCT USED FOR UNKNOWN INDICATION
  6. CALCIUM [Concomitant]
     Indication: MINERAL SUPPLEMENTATION
  7. VITAMINS [Concomitant]
     Indication: VITAMIN SUPPLEMENTATION

REACTIONS (12)
  - Haemochromatosis [Not Recovered/Not Resolved]
  - Nasopharyngitis [Recovered/Resolved]
  - Sinusitis [Recovered/Resolved]
  - Urticaria [Recovered/Resolved]
  - Generalised erythema [Recovered/Resolved]
  - Heart rate increased [Recovered/Resolved]
  - Pruritus [Recovered/Resolved]
  - Throat irritation [Recovered/Resolved]
  - Rheumatoid arthritis [Not Recovered/Not Resolved]
  - Pain in extremity [Not Recovered/Not Resolved]
  - Musculoskeletal stiffness [Not Recovered/Not Resolved]
  - Local swelling [Not Recovered/Not Resolved]
